FAERS Safety Report 9150717 (Version 2)
Quarter: 2013Q2

REPORT INFORMATION
  Report Type: Spontaneous
  Country: BE (occurrence: BE)
  Receive Date: 20130308
  Receipt Date: 20130417
  Transmission Date: 20140414
  Serious: Yes (Hospitalization)
  Sender: FDA-Public Use
  Company Number: BE-ASTRAZENECA-2013SE14285

PATIENT
  Age: 64 Year
  Sex: Male
  Weight: 65 kg

DRUGS (11)
  1. CRESTOR [Suspect]
     Route: 048
  2. ALPHA-RIX [Suspect]
     Route: 030
     Dates: start: 201211
  3. LIPANTHYL [Suspect]
     Route: 048
  4. AMLOR [Suspect]
     Route: 048
     Dates: start: 20121109, end: 20121116
  5. COVERSYL [Suspect]
     Route: 048
     Dates: start: 20121116
  6. ZANTAC [Suspect]
     Route: 065
  7. DAFALGAN FORTE [Concomitant]
     Route: 048
  8. DUSPATALIN [Concomitant]
     Route: 048
  9. DIPHANTOINE [Concomitant]
     Route: 048
  10. ENTEROL [Concomitant]
     Route: 048
  11. VALTRAN [Concomitant]
     Dosage: GTT

REACTIONS (1)
  - Muscle disorder [Unknown]
